FAERS Safety Report 15834132 (Version 1)
Quarter: 2019Q1

REPORT INFORMATION
  Report Type: Spontaneous
  Country: HU (occurrence: HU)
  Receive Date: 20190116
  Receipt Date: 20190116
  Transmission Date: 20190417
  Serious: Yes (Other)
  Sender: FDA-Public Use
  Company Number: HU-ESPERO PHARMACEUTICALS-ESP201901-000001

PATIENT
  Age: 80 Year
  Sex: Female

DRUGS (2)
  1. ACETYLSALIYCYLIC ACID [Concomitant]
     Indication: CHEST PAIN
  2. NITROGLYCERIN. [Suspect]
     Active Substance: NITROGLYCERIN
     Indication: CHEST PAIN

REACTIONS (3)
  - Left ventricular dysfunction [Recovered/Resolved]
  - Arterial stenosis [Recovered/Resolved]
  - Stress cardiomyopathy [Recovered/Resolved]
